FAERS Safety Report 12565312 (Version 3)
Quarter: 2016Q3

REPORT INFORMATION
  Report Type: Spontaneous
  Country: US (occurrence: US)
  Receive Date: 20160718
  Receipt Date: 20160820
  Transmission Date: 20161109
  Serious: Yes (Death, Life-Threatening, Hospitalization, Other)
  Sender: FDA-Public Use
  Company Number: US-AUROBINDO-AUR-APL-2016-09236

PATIENT
  Age: 62 Year
  Sex: Male

DRUGS (2)
  1. COCAINE [Concomitant]
     Active Substance: COCAINE
     Indication: PRODUCT USED FOR UNKNOWN INDICATION
     Dosage: UNK
  2. ACETAMINOPHEN. [Suspect]
     Active Substance: ACETAMINOPHEN
     Indication: BACK PAIN
     Route: 065

REACTIONS (15)
  - Bradycardia [Unknown]
  - Cardio-respiratory arrest [Fatal]
  - Overdose [Unknown]
  - Gastrointestinal haemorrhage [Unknown]
  - Haematemesis [Unknown]
  - Acute hepatic failure [Unknown]
  - Hypotension [Unknown]
  - Pulse absent [Unknown]
  - Intestinal ischaemia [Unknown]
  - Unresponsive to stimuli [Unknown]
  - Pneumatosis [Unknown]
  - Multiple organ dysfunction syndrome [Unknown]
  - Hyperkalaemia [Unknown]
  - Brain oedema [Unknown]
  - Pallor [Unknown]
